FAERS Safety Report 17363360 (Version 1)
Quarter: 2020Q1

REPORT INFORMATION
  Report Type: Spontaneous
  Country: FR (occurrence: FR)
  Receive Date: 20200203
  Receipt Date: 20200203
  Transmission Date: 20200409
  Serious: Yes (Death, Hospitalization, Other)
  Sender: FDA-Public Use
  Company Number: FR-GILEAD-2019-0432975

PATIENT
  Age: 71 Year
  Sex: Male
  Weight: 82 kg

DRUGS (1)
  1. CAYSTON [Suspect]
     Active Substance: AZTREONAM
     Indication: CHRONIC OBSTRUCTIVE PULMONARY DISEASE
     Dosage: UNK
     Route: 055
     Dates: start: 20191009

REACTIONS (14)
  - Nausea [Unknown]
  - Off label use [Unknown]
  - Incorrect dose administered by device [Recovered/Resolved]
  - Product preparation error [Recovered/Resolved]
  - Intentional product misuse [Unknown]
  - Dyspnoea [Recovering/Resolving]
  - Product label issue [Unknown]
  - Fatigue [Unknown]
  - Death [Fatal]
  - Nervous system disorder [Unknown]
  - Feeding disorder [Unknown]
  - Drug administered in wrong device [Recovered/Resolved]
  - Device dispensing error [Recovered/Resolved]
  - Dyskinesia [Unknown]

NARRATIVE: CASE EVENT DATE: 201910
